FAERS Safety Report 13226223 (Version 2)
Quarter: 2017Q1

REPORT INFORMATION
  Report Type: Spontaneous
  Country: US (occurrence: US)
  Receive Date: 20170213
  Receipt Date: 20170307
  Transmission Date: 20170428
  Serious: No
  Sender: FDA-Public Use
  Company Number: US-PFIZER INC-2017017272

PATIENT
  Age: 50 Year
  Sex: Female

DRUGS (2)
  1. SERTRALINE HCL [Suspect]
     Active Substance: SERTRALINE HYDROCHLORIDE
     Dosage: 200 MG, DAILY (IN J-TUBE)
     Route: 048
     Dates: start: 20170110
  2. SERTRALINE HCL [Suspect]
     Active Substance: SERTRALINE HYDROCHLORIDE
     Dosage: 10 ML, DAILY (PER J-JUBE)
     Route: 048
     Dates: start: 20170109

REACTIONS (1)
  - Dumping syndrome [Not Recovered/Not Resolved]
